FAERS Safety Report 11706488 (Version 2)
Quarter: 2015Q4

REPORT INFORMATION
  Report Type: Report from Study
  Country: US (occurrence: US)
  Receive Date: 20151106
  Receipt Date: 20151215
  Transmission Date: 20160304
  Serious: Yes (Other)
  Sender: FDA-Public Use
  Company Number: PHEH2015US022474

PATIENT
  Age: 22 Year
  Sex: Female

DRUGS (1)
  1. ILARIS [Suspect]
     Active Substance: CANAKINUMAB
     Indication: PRODUCT USED FOR UNKNOWN INDICATION
     Route: 065

REACTIONS (9)
  - Condition aggravated [Unknown]
  - Abdominal pain upper [Unknown]
  - Rash [Unknown]
  - Vomiting [Unknown]
  - Full blood count increased [Unknown]
  - Pain [Unknown]
  - Chills [Unknown]
  - Hyper IgD syndrome [Unknown]
  - Infection [Unknown]
